FAERS Safety Report 19193942 (Version 1)
Quarter: 2021Q2

REPORT INFORMATION
  Report Type: Spontaneous
  Country: US (occurrence: US)
  Receive Date: 20210429
  Receipt Date: 20210429
  Transmission Date: 20210717
  Serious: No
  Sender: FDA-Public Use
  Company Number: None

PATIENT
  Age: 45 Year
  Sex: Male
  Weight: 149.7 kg

DRUGS (1)
  1. BAMLANIVIMAB AND ETESEVIMAB [Suspect]
     Active Substance: BAMLANIVIMAB\ETESEVIMAB
     Indication: COVID-19
     Route: 042
     Dates: start: 20210426, end: 20210426

REACTIONS (4)
  - Cold sweat [None]
  - Muscle spasms [None]
  - Hyperhidrosis [None]
  - Pallor [None]

NARRATIVE: CASE EVENT DATE: 20210426
